FAERS Safety Report 25113034 (Version 2)
Quarter: 2025Q2

REPORT INFORMATION
  Report Type: Spontaneous
  Country: CR (occurrence: CR)
  Receive Date: 20250324
  Receipt Date: 20250415
  Transmission Date: 20250717
  Serious: No
  Sender: AMGEN
  Company Number: CR-AMGEN-CRISP2025054536

PATIENT
  Age: 51 Year
  Sex: Male

DRUGS (1)
  1. VECTIBIX [Suspect]
     Active Substance: PANITUMUMAB
     Indication: Colon cancer
     Dosage: 408 MILLIGRAM, Q2WK/EVERY 2 WEEKS
     Route: 040
     Dates: start: 20240914

REACTIONS (2)
  - Mouth ulceration [Recovering/Resolving]
  - Skin disorder [Recovering/Resolving]

NARRATIVE: CASE EVENT DATE: 20250301
